FAERS Safety Report 4481383-3 (Version None)
Quarter: 2004Q4

REPORT INFORMATION
  Report Type: 
  Country: None (occurrence: None)
  Receive Date: 20040923
  Receipt Date: 20040809
  Transmission Date: 20050328
  Serious: No
  Sender: FDA-Public Use
  Company Number: USA031153345

PATIENT
  Age: 84 Year
  Sex: Female
  Weight: 48 kg

DRUGS (4)
  1. FORTEO [Suspect]
     Indication: OSTEOPOROSIS
     Dosage: 20 UG DAY
     Dates: start: 20031030
  2. ACTONEL [Concomitant]
  3. MULTIVITAMIN [Concomitant]
  4. CALCIUM PLUS D [Concomitant]

REACTIONS (6)
  - AGITATION [None]
  - EMOTIONAL DISTRESS [None]
  - FALL [None]
  - MUSCLE CRAMP [None]
  - TEARFULNESS [None]
  - TOOTH EXTRACTION [None]
